FAERS Safety Report 8347847-7 (Version None)
Quarter: 2012Q2

REPORT INFORMATION
  Report Type: 
  Country: None (occurrence: None)
  Receive Date: 20120507
  Receipt Date: 20120427
  Transmission Date: 20120825
  Serious: Yes (Life-Threatening, Hospitalization)
  Sender: FDA-Public Use
  Company Number: GER/UKI/12/0024114

PATIENT
  Age: 42 Year
  Sex: Female

DRUGS (12)
  1. OMEPRAZOLE [Suspect]
     Indication: PRODUCT USED FOR UNKNOWN INDICATION
     Dosage: 20 MG, 2 IN 1D, ORAL
     Route: 048
  2. SULFASALAZINE [Suspect]
     Indication: PRODUCT USED FOR UNKNOWN INDICATION
     Dosage: 500 MG, ORAL
     Route: 048
  3. HYDROXYCHLOROQUINE SULFATE [Suspect]
     Indication: RHEUMATOID ARTHRITIS
     Dosage: 400 MG, 1 IN 1 D, ORAL
     Route: 048
  4. METRONIDAZOLE [Concomitant]
  5. METHOTREXATE [Suspect]
     Indication: PRODUCT USED FOR UNKNOWN INDICATION
     Dosage: 25 MG, 1 IN 1 WK, ORAL
     Route: 048
  6. VENLAFAXINE HYDROCHLORIDE [Suspect]
     Indication: PRODUCT USED FOR UNKNOWN INDICATION
     Dosage: 75 MG, 2  IN 1 D, ORAL
     Route: 048
  7. BYSTATIN (NYSTATIN) [Concomitant]
  8. BENZYDAMINE (BENZYDAMINE) [Concomitant]
  9. FLOXACILLIN SODIUM [Concomitant]
  10. MICONAZOLE (MICONAZOLE) [Concomitant]
  11. GABAPENTIN [Suspect]
     Indication: PRODUCT USED FOR UNKNOWN INDICATION
     Dosage: 600 MG, 4 IN 1 D, ORAL
     Route: 048
  12. SCHERIPROCT (SCHERIPROCT) [Concomitant]

REACTIONS (7)
  - THROMBOCYTOPENIA [None]
  - DIARRHOEA [None]
  - FULL BLOOD COUNT ABNORMAL [None]
  - CONTUSION [None]
  - ABDOMINAL PAIN [None]
  - HAEMATEMESIS [None]
  - ACUTE MYELOID LEUKAEMIA [None]
